FAERS Safety Report 11628474 (Version 1)
Quarter: 2015Q4

REPORT INFORMATION
  Report Type: Report from Study
  Country: AU (occurrence: AU)
  Receive Date: 20151014
  Receipt Date: 20151014
  Transmission Date: 20160304
  Serious: Yes (Death, Other)
  Sender: FDA-Public Use
  Company Number: AU-ROCHE-1645950

PATIENT
  Age: 72 Year
  Sex: Male

DRUGS (3)
  1. BEVACIZUMAB [Suspect]
     Active Substance: BEVACIZUMAB
     Indication: COLORECTAL CANCER
     Route: 065
     Dates: end: 201508
  2. OXALIPLATIN. [Concomitant]
     Active Substance: OXALIPLATIN
  3. XELODA [Concomitant]
     Active Substance: CAPECITABINE
     Route: 065

REACTIONS (4)
  - Portal vein thrombosis [Fatal]
  - Deep vein thrombosis [Unknown]
  - Disease progression [Fatal]
  - Intestinal ischaemia [Unknown]

NARRATIVE: CASE EVENT DATE: 20150919
